FAERS Safety Report 17396559 (Version 2)
Quarter: 2020Q1

REPORT INFORMATION
  Report Type: Spontaneous
  Country: US (occurrence: US)
  Receive Date: 20200210
  Receipt Date: 20200213
  Transmission Date: 20200409
  Serious: No
  Sender: FDA-Public Use
  Company Number: US-PFIZER INC-2020053505

PATIENT
  Age: 63 Year
  Sex: Female
  Weight: 68.4 kg

DRUGS (3)
  1. CHANTIX [Suspect]
     Active Substance: VARENICLINE TARTRATE
     Indication: SMOKING CESSATION THERAPY
     Dosage: UNSPECIFIED DOSE (REPORTED AS ^HOW ONE IS SUPPOSED TO DO TO BEGIN WITH (A STARTER PACK)^)
     Route: 048
     Dates: start: 2008
  2. CHANTIX [Suspect]
     Active Substance: VARENICLINE TARTRATE
     Dosage: 1 MG, 2X/DAY
     Route: 048
     Dates: start: 2019
  3. ISOSORBIDE MONONITRATE. [Suspect]
     Active Substance: ISOSORBIDE MONONITRATE
     Indication: CARDIAC DISORDER
     Dosage: UNK, 1X/DAY (TAKES IT ONCE A DAY)

REACTIONS (2)
  - Somnolence [Unknown]
  - Body height decreased [Unknown]
